FAERS Safety Report 16877807 (Version 2)
Quarter: 2020Q1

REPORT INFORMATION
  Report Type: Report from Study
  Country: US (occurrence: US)
  Receive Date: 20191002
  Receipt Date: 20200211
  Transmission Date: 20200409
  Serious: Yes (Hospitalization)
  Sender: FDA-Public Use
  Company Number: US-EISAI MEDICAL RESEARCH-EC-2019-062851

PATIENT
  Age: 56 Year
  Sex: Male
  Weight: 77 kg

DRUGS (5)
  1. LENVIMA [Suspect]
     Active Substance: LENVATINIB
     Dosage: MISSED ONE DOSE
     Route: 048
     Dates: start: 20190924, end: 202001
  2. LENVIMA [Suspect]
     Active Substance: LENVATINIB
     Route: 048
     Dates: start: 2020
  3. LOVENOX [Concomitant]
     Active Substance: ENOXAPARIN SODIUM
  4. LENVIMA [Suspect]
     Active Substance: LENVATINIB
     Indication: HEPATIC CANCER
     Route: 048
     Dates: start: 20190919, end: 201909
  5. FLOMAX [Concomitant]
     Active Substance: TAMSULOSIN HYDROCHLORIDE

REACTIONS (9)
  - Weight decreased [Unknown]
  - Pyrexia [Recovered/Resolved]
  - Vomiting [Unknown]
  - Injection site bruising [Unknown]
  - Dehydration [Recovered/Resolved]
  - Abdominal discomfort [Recovering/Resolving]
  - Insomnia [Unknown]
  - Hypertension [Recovered/Resolved]
  - Nausea [Unknown]

NARRATIVE: CASE EVENT DATE: 201909
